FAERS Safety Report 4565372-6 (Version None)
Quarter: 2005Q1

REPORT INFORMATION
  Report Type: 
  Country: None (occurrence: None)
  Receive Date: 20050125
  Receipt Date: 20050125
  Transmission Date: 20050727
  Serious: No
  Sender: FDA-Public Use
  Company Number: None

PATIENT
  Age: 74 Year
  Sex: Female

DRUGS (1)
  1. LIPITOR [Suspect]
     Dosage: DAILY PO
     Route: 048
     Dates: start: 20000101, end: 20050120

REACTIONS (1)
  - LIVER FUNCTION TEST ABNORMAL [None]
